FAERS Safety Report 9736172 (Version 2)
Quarter: 2014Q1

REPORT INFORMATION
  Report Type: Report from Study
  Country: CA (occurrence: CA)
  Receive Date: 20131206
  Receipt Date: 20140117
  Transmission Date: 20141002
  Serious: Yes (Other)
  Sender: FDA-Public Use
  Company Number: CA-ABBVIE-13P-028-1174838-00

PATIENT
  Sex: Female
  Weight: 80.81 kg

DRUGS (3)
  1. HUMIRA [Suspect]
     Indication: RHEUMATOID ARTHRITIS
     Route: 058
     Dates: start: 20050128, end: 20130906
  2. HUMIRA [Suspect]
     Route: 058
     Dates: start: 20130927
  3. HUMIRA [Suspect]
     Route: 058
     Dates: start: 20131122

REACTIONS (3)
  - Cartilage atrophy [Recovered/Resolved]
  - Chronic sinusitis [Recovered/Resolved]
  - Sinusitis [Unknown]
